FAERS Safety Report 10218196 (Version 4)
Quarter: 2014Q3

REPORT INFORMATION
  Report Type: Spontaneous
  Country: US (occurrence: US)
  Receive Date: 20140605
  Receipt Date: 20140923
  Transmission Date: 20150326
  Serious: Yes (Hospitalization)
  Sender: FDA-Public Use
  Company Number: US-BIOGENIDEC-2014BI048470

PATIENT
  Age: 56 Year
  Sex: Female

DRUGS (8)
  1. TECFIDERA [Suspect]
     Active Substance: DIMETHYL FUMARATE
     Indication: PRODUCT USED FOR UNKNOWN INDICATION
     Dates: start: 201309
  2. BENADRYL [Concomitant]
     Active Substance: DIPHENHYDRAMINE HYDROCHLORIDE
  3. CLARITIN [Concomitant]
     Active Substance: LORATADINE
  4. VITAMIN D [Concomitant]
     Active Substance: CHOLECALCIFEROL
  5. VITAMIN B12 [Concomitant]
     Active Substance: CYANOCOBALAMIN
  6. FISH OIL [Concomitant]
     Active Substance: FISH OIL
  7. TECFIDERA [Suspect]
     Active Substance: DIMETHYL FUMARATE
     Indication: PRODUCT USED FOR UNKNOWN INDICATION
     Route: 048
     Dates: start: 201310
  8. PRILOSEC [Concomitant]
     Active Substance: OMEPRAZOLE MAGNESIUM

REACTIONS (9)
  - Dysphagia [Unknown]
  - Throat tightness [Recovered/Resolved]
  - Thyroid neoplasm [Recovered/Resolved]
  - Ear pain [Unknown]
  - Papillary thyroid cancer [Not Recovered/Not Resolved]
  - General symptom [Recovered/Resolved]
  - Pharyngeal disorder [Recovered/Resolved]
  - Dysphonia [Unknown]
  - Aphonia [Not Recovered/Not Resolved]

NARRATIVE: CASE EVENT DATE: 20140324
